FAERS Safety Report 21183704 (Version 1)
Quarter: 2022Q3

REPORT INFORMATION
  Report Type: Spontaneous
  Country: IN (occurrence: IN)
  Receive Date: 20220808
  Receipt Date: 20220808
  Transmission Date: 20221027
  Serious: Yes (Death, Hospitalization, Other)
  Sender: FDA-Public Use
  Company Number: IN-BRISTOL-MYERS SQUIBB COMPANY-2022-082404

PATIENT
  Age: 57 Year
  Sex: Female

DRUGS (2)
  1. NIVOLUMAB [Suspect]
     Active Substance: NIVOLUMAB
     Indication: Breast cancer metastatic
     Route: 065
  2. NIVOLUMAB [Suspect]
     Active Substance: NIVOLUMAB
     Dosage: FREQ : 240 MG IN 250 ML NS OVER 1.5 HOURS, EVERY TWO WEEKS (4TH COURSE IMMUNOTHERAPY)
     Route: 065
     Dates: start: 20211020

REACTIONS (5)
  - Septic shock [Fatal]
  - Malignant neoplasm progression [Fatal]
  - Pneumonitis [Unknown]
  - Intentional product use issue [Unknown]
  - Acute coronary syndrome [Unknown]
